FAERS Safety Report 8450513-0 (Version None)
Quarter: 2012Q2

REPORT INFORMATION
  Report Type: 
  Country: None (occurrence: None)
  Receive Date: 20120620
  Receipt Date: 20120608
  Transmission Date: 20120825
  Serious: Yes (Other)
  Sender: FDA-Public Use
  Company Number: US-PFIZER INC-2009314340

PATIENT
  Sex: Male

DRUGS (2)
  1. DILANTIN KAPSEAL [Suspect]
     Dosage: 100 MG, UNK
     Dates: start: 20010424
  2. DILANTIN [Suspect]
     Indication: BACK PAIN
     Dosage: 100 MG CAPSULES THREE PER DAY
     Route: 048
     Dates: start: 20071220

REACTIONS (1)
  - STEVENS-JOHNSON SYNDROME [None]
